FAERS Safety Report 7021685-X (Version None)
Quarter: 2010Q3

REPORT INFORMATION
  Report Type: 
  Country: None (occurrence: None)
  Receive Date: 20100928
  Receipt Date: 20100915
  Transmission Date: 20110219
  Serious: Yes (Life-Threatening, Other)
  Sender: FDA-Public Use
  Company Number: 2010BN000052

PATIENT
  Age: 65 Year
  Sex: Female

DRUGS (8)
  1. MELPHALAN HYDROCHLORIDE [Suspect]
     Indication: MULTIPLE MYELOMA
  2. VINCRISTINE [Suspect]
     Indication: MULTIPLE MYELOMA
  3. DOXORUBICIN HCL [Suspect]
     Indication: MULTIPLE MYELOMA
  4. DEXAMETHASONE [Suspect]
     Indication: MULTIPLE MYELOMA
  5. INTERFERON ALFA [Suspect]
     Indication: MULTIPLE MYELOMA
  6. VITAMIN K ANTAGONIST (NO PREF. NAME) [Suspect]
     Indication: THROMBOSIS PROPHYLAXIS
  7. CON MEDS =UNKNOWN [Concomitant]
  8. PREV MEDS =UNKNOWN [Concomitant]

REACTIONS (2)
  - ARTERIAL THROMBOSIS [None]
  - CEREBROVASCULAR ACCIDENT [None]
